FAERS Safety Report 6998648-3 (Version None)
Quarter: 2010Q3

REPORT INFORMATION
  Report Type: 
  Country: None (occurrence: None)
  Receive Date: 20100920
  Receipt Date: 20100409
  Transmission Date: 20110219
  Serious: No
  Sender: FDA-Public Use
  Company Number: US-ASTRAZENECA-2009SE33697

PATIENT
  Age: 55 Year
  Sex: Male
  Weight: 75.3 kg

DRUGS (13)
  1. SEROQUEL [Suspect]
     Indication: INSOMNIA
     Route: 048
  2. SEROQUEL [Suspect]
     Indication: ANXIETY
     Route: 048
  3. SEROQUEL [Suspect]
     Indication: MAJOR DEPRESSION
     Route: 048
  4. SEROQUEL [Suspect]
     Route: 048
  5. SEROQUEL [Suspect]
     Route: 048
  6. SEROQUEL [Suspect]
     Route: 048
  7. SEROQUEL [Suspect]
     Route: 048
     Dates: start: 20100407
  8. SEROQUEL [Suspect]
     Route: 048
     Dates: start: 20100407
  9. SEROQUEL [Suspect]
     Route: 048
     Dates: start: 20100407
  10. VALIUM [Concomitant]
     Indication: ANXIETY
  11. LEXAPRO [Concomitant]
     Indication: DEPRESSION
  12. EYEDROPS [Concomitant]
  13. WELLBUTRIN [Concomitant]

REACTIONS (4)
  - INAPPROPRIATE SCHEDULE OF DRUG ADMINISTRATION [None]
  - INSOMNIA [None]
  - SEDATION [None]
  - SOMNOLENCE [None]
